FAERS Safety Report 5714095-6 (Version None)
Quarter: 2008Q2

REPORT INFORMATION
  Report Type: 
  Country: None (occurrence: None)
  Receive Date: 20080422
  Receipt Date: 20080422
  Transmission Date: 20081010
  Serious: Yes (Death)
  Sender: FDA-Public Use
  Company Number: None

PATIENT
  Age: 19 Year
  Sex: Female

DRUGS (2)
  1. PROPYLTHIOURACIL 100MG TAB [Suspect]
     Indication: BASEDOW'S DISEASE
     Dosage: 100 MG TID PO
     Route: 048
     Dates: start: 20070801, end: 20071121
  2. PROPYLTHIOURACIL 100MG TAB [Suspect]
     Indication: HYPERTHYROIDISM
     Dosage: 100 MG TID PO
     Route: 048
     Dates: start: 20070801, end: 20071121

REACTIONS (11)
  - ACUTE HEPATIC FAILURE [None]
  - BRAIN HERNIATION [None]
  - COAGULOPATHY [None]
  - ENCEPHALOPATHY [None]
  - GENERAL PHYSICAL HEALTH DETERIORATION [None]
  - HEPATIC FIBROSIS [None]
  - HEPATIC NECROSIS [None]
  - HEPATITIS [None]
  - HEPATOCELLULAR INJURY [None]
  - LIVER INJURY [None]
  - LIVER TRANSPLANT [None]
